FAERS Safety Report 25414386 (Version 2)
Quarter: 2025Q2

REPORT INFORMATION
  Report Type: Spontaneous
  Country: US (occurrence: US)
  Receive Date: 20250609
  Receipt Date: 20250611
  Transmission Date: 20250716
  Serious: No
  Sender: SANOFI AVENTIS
  Company Number: US-SANOFI-02542710

PATIENT
  Age: 76 Year
  Sex: Female

DRUGS (1)
  1. LANTUS SOLOSTAR [Suspect]
     Active Substance: INSULIN GLARGINE
     Indication: Diabetes mellitus
     Dosage: 30 IU, QD
     Dates: start: 202405

REACTIONS (6)
  - Feeling abnormal [Unknown]
  - Tremor [Unknown]
  - Hyperhidrosis [Unknown]
  - Feeling hot [Unknown]
  - Dizziness [Unknown]
  - Device operational issue [Unknown]

NARRATIVE: CASE EVENT DATE: 20250524
